FAERS Safety Report 7048530-0 (Version None)
Quarter: 2010Q4

REPORT INFORMATION
  Report Type: 
  Country: None (occurrence: None)
  Receive Date: 20101007
  Receipt Date: 20100929
  Transmission Date: 20110411
  Serious: Yes (Hospitalization, Other)
  Sender: FDA-Public Use
  Company Number: 2007-165251-NL

PATIENT
  Age: 30 Year
  Sex: Female
  Weight: 115.2136 kg

DRUGS (4)
  1. NUVARING [Suspect]
     Indication: CONTRACEPTION
     Dosage: VAG
     Route: 067
     Dates: start: 20050527, end: 20060213
  2. NUVARING [Suspect]
     Indication: MENSTRUAL CYCLE MANAGEMENT
     Dosage: VAG
     Route: 067
     Dates: start: 20050527, end: 20060213
  3. LASIX [Concomitant]
  4. METRONIDAZOLE [Concomitant]

REACTIONS (14)
  - BACK PAIN [None]
  - BLOOD DISORDER [None]
  - BREAST MASS [None]
  - CHOLELITHIASIS [None]
  - DEEP VEIN THROMBOSIS [None]
  - FATIGUE [None]
  - INFECTION [None]
  - MALAISE [None]
  - MENOMETRORRHAGIA [None]
  - MICROCYTIC ANAEMIA [None]
  - NECK PAIN [None]
  - OEDEMA PERIPHERAL [None]
  - PELVIC CONGESTION [None]
  - RENAL ATROPHY [None]
